FAERS Safety Report 9075427 (Version 1)
Quarter: 2013Q1

REPORT INFORMATION
  Report Type: Report from Study
  Country: US (occurrence: US)
  Receive Date: 20130129
  Receipt Date: 20130129
  Transmission Date: 20140127
  Serious: No
  Sender: FDA-Public Use
  Company Number: US-ABBOTT-12P-163-0919818-00

PATIENT
  Age: 21 Year
  Sex: Male

DRUGS (7)
  1. HUMIRA 40 MG/0.8 ML PEN [Suspect]
     Indication: CROHN^S DISEASE
     Dosage: DAY ONE
     Dates: start: 20120314, end: 20120314
  2. HUMIRA 40 MG/0.8 ML PEN [Suspect]
     Dosage: DAY 15
  3. HUMIRA 40 MG/0.8 ML PEN [Suspect]
     Dosage: DAY 29
  4. APRISO [Concomitant]
     Indication: PRODUCT USED FOR UNKNOWN INDICATION
     Dosage: DAILY
     Route: 048
  5. PENTASA [Concomitant]
     Indication: PRODUCT USED FOR UNKNOWN INDICATION
     Dosage: DAILY
     Route: 048
  6. AMPICILLIN [Concomitant]
     Indication: ACNE
     Dosage: DAILY
     Route: 048
  7. PROBIOTIC VSL5 [Concomitant]
     Indication: PRODUCT USED FOR UNKNOWN INDICATION

REACTIONS (1)
  - Injection site swelling [Not Recovered/Not Resolved]
